FAERS Safety Report 7925647-7 (Version None)
Quarter: 2011Q4

REPORT INFORMATION
  Report Type: 
  Country: None (occurrence: None)
  Receive Date: 20111118
  Receipt Date: 20110409
  Transmission Date: 20120403
  Serious: No
  Sender: FDA-Public Use
  Company Number: US-AMGEN-USASP2011003207

PATIENT
  Age: 42 Year
  Sex: Female

DRUGS (2)
  1. ENBREL [Suspect]
     Indication: PSORIATIC ARTHROPATHY
     Dosage: 50 MG, 2 TIMES/WK
     Dates: start: 20110107, end: 20110121
  2. ENBREL [Suspect]
     Indication: PSORIASIS

REACTIONS (8)
  - INJECTION SITE ERYTHEMA [None]
  - BRONCHITIS [None]
  - INJECTION SITE SWELLING [None]
  - INJECTION SITE INDURATION [None]
  - SINUSITIS [None]
  - INJECTION SITE DISCOMFORT [None]
  - PHARYNGITIS STREPTOCOCCAL [None]
  - GASTROENTERITIS VIRAL [None]
